FAERS Safety Report 5505030-4 (Version None)
Quarter: 2007Q4

REPORT INFORMATION
  Report Type: 
  Country: None (occurrence: None)
  Receive Date: 20071102
  Receipt Date: 20071029
  Transmission Date: 20080405
  Serious: Yes (Hospitalization)
  Sender: FDA-Public Use
  Company Number: JP-BRISTOL-MYERS SQUIBB COMPANY-13966106

PATIENT
  Age: 60 Year
  Sex: Female

DRUGS (2)
  1. PARAPLATIN [Suspect]
     Indication: UTERINE CANCER
     Route: 041
     Dates: end: 20071024
  2. TAXOL [Suspect]
     Indication: UTERINE CANCER
     Route: 041
     Dates: end: 20071024

REACTIONS (1)
  - ANAPHYLACTIC SHOCK [None]
